FAERS Safety Report 9093046 (Version 1)
Quarter: 2013Q1

REPORT INFORMATION
  Report Type: Spontaneous
  Country: CA (occurrence: CA)
  Receive Date: 20130201
  Receipt Date: 20130201
  Transmission Date: 20140127
  Serious: Yes (Hospitalization, Other)
  Sender: FDA-Public Use
  Company Number: CA-ABBOTT-13P-028-1042355-00

PATIENT
  Age: 83 Year
  Sex: Male
  Weight: 63 kg

DRUGS (7)
  1. NORVIR [Suspect]
     Indication: PRODUCT USED FOR UNKNOWN INDICATION
  2. ADVAIR [Suspect]
     Indication: PRODUCT USED FOR UNKNOWN INDICATION
     Dosage: 2 DOSAGE FORMS
     Route: 055
  3. BETADERM [Concomitant]
     Indication: PRODUCT USED FOR UNKNOWN INDICATION
  4. CLOTRIMADERM [Concomitant]
     Indication: PRODUCT USED FOR UNKNOWN INDICATION
  5. COVERSYL [Concomitant]
     Indication: PRODUCT USED FOR UNKNOWN INDICATION
  6. PARIET [Concomitant]
     Indication: PRODUCT USED FOR UNKNOWN INDICATION
  7. VENTOLIN [Concomitant]
     Indication: PRODUCT USED FOR UNKNOWN INDICATION

REACTIONS (6)
  - Cushing^s syndrome [Unknown]
  - Blood triglycerides increased [Unknown]
  - Face oedema [Unknown]
  - Hyperglycaemia [Unknown]
  - Skin depigmentation [Unknown]
  - Weight increased [Unknown]
